FAERS Safety Report 19036504 (Version 1)
Quarter: 2021Q1

REPORT INFORMATION
  Report Type: Spontaneous
  Country: US (occurrence: US)
  Receive Date: 20210319
  Receipt Date: 20210319
  Transmission Date: 20210420
  Serious: Yes (Hospitalization)
  Sender: FDA-Public Use
  Company Number: None

PATIENT
  Age: 55 Year
  Sex: Male

DRUGS (14)
  1. LAMOTRIGINE. [Concomitant]
     Active Substance: LAMOTRIGINE
  2. ASPIRIN. [Concomitant]
     Active Substance: ASPIRIN
  3. SERTALINE [Concomitant]
     Active Substance: SERTRALINE HYDROCHLORIDE
     Dates: start: 20201215
  4. ELIQUIS [Concomitant]
     Active Substance: APIXABAN
     Dates: start: 20201227
  5. FUROSEMIDE. [Concomitant]
     Active Substance: FUROSEMIDE
     Dates: start: 20210222
  6. CARVEDILOL. [Concomitant]
     Active Substance: CARVEDILOL
     Dates: start: 20201217
  7. LISINOPN^L [Concomitant]
     Dates: start: 20201227
  8. CINACALCET. [Suspect]
     Active Substance: CINACALCET
     Route: 048
  9. AMIODARONE [Concomitant]
     Active Substance: AMIODARONE
     Dates: start: 20201126
  10. ARTOVASTATIN [Concomitant]
     Dates: start: 20210125
  11. ESZOPICLONE. [Concomitant]
     Active Substance: ESZOPICLONE
     Dates: start: 20210223
  12. VITAMIN D [Concomitant]
     Active Substance: VITAMIN D NOS
     Dates: start: 20210130
  13. QUETIAPINE. [Concomitant]
     Active Substance: QUETIAPINE
     Dates: start: 20201211
  14. LEVOTHYROXIN [Concomitant]
     Active Substance: LEVOTHYROXINE
     Dates: start: 20201218

REACTIONS (2)
  - Back disorder [None]
  - Dialysis [None]

NARRATIVE: CASE EVENT DATE: 20210318
